FAERS Safety Report 4373407-9 (Version None)
Quarter: 2004Q2

REPORT INFORMATION
  Report Type: 
  Country: None (occurrence: None)
  Receive Date: 20040603
  Receipt Date: 20040521
  Transmission Date: 20050107
  Serious: Yes (Hospitalization, Other)
  Sender: FDA-Public Use
  Company Number: 2004213503JP

PATIENT
  Age: 74 Year
  Sex: Female

DRUGS (2)
  1. HALCION [Suspect]
     Dosage: 14 TABLETS, ORAL
     Route: 048
  2. AMOBAN (ZOPICLONE) [Suspect]
     Dosage: 14 TABLETS, ORAL
     Route: 048

REACTIONS (4)
  - COMA [None]
  - CONDITION AGGRAVATED [None]
  - HEPATITIS C [None]
  - OVERDOSE [None]
